FAERS Safety Report 16831926 (Version 1)
Quarter: 2019Q3

REPORT INFORMATION
  Report Type: Report from Study
  Country: None (occurrence: US)
  Receive Date: 20190920
  Receipt Date: 20190920
  Transmission Date: 20191005
  Serious: Yes (Other)
  Sender: FDA-Public Use
  Company Number: US-ABBVIE-19K-163-2930500-00

PATIENT
  Age: 56 Year
  Sex: Female

DRUGS (1)
  1. DUOPA [Suspect]
     Active Substance: CARBIDOPA\LEVODOPA
     Indication: PRODUCT USED FOR UNKNOWN INDICATION
     Route: 050
     Dates: start: 2017

REACTIONS (5)
  - Medical device site infection [Unknown]
  - Device dislocation [Unknown]
  - Choking [Unknown]
  - Procedural complication [Recovered/Resolved]
  - Foreign body [Recovered/Resolved]
